FAERS Safety Report 7989286-4 (Version None)
Quarter: 2011Q4

REPORT INFORMATION
  Report Type: 
  Country: None (occurrence: None)
  Receive Date: 20111219
  Receipt Date: 20111215
  Transmission Date: 20120403
  Serious: Yes (Hospitalization)
  Sender: FDA-Public Use
  Company Number: US-CEPHALON-2011006251

PATIENT
  Sex: Male
  Weight: 72 kg

DRUGS (2)
  1. BENDAMUSTINE HCL [Suspect]
     Indication: NON-HODGKIN'S LYMPHOMA
     Route: 042
     Dates: start: 20110113
  2. OBINUTUZUMAB [Suspect]
     Dates: start: 20110112

REACTIONS (2)
  - SEROMA [None]
  - PYREXIA [None]
